FAERS Safety Report 10993073 (Version 1)
Quarter: 2015Q2

REPORT INFORMATION
  Report Type: Spontaneous
  Country: FR (occurrence: FR)
  Receive Date: 20150407
  Receipt Date: 20150407
  Transmission Date: 20150821
  Serious: Yes (Hospitalization)
  Sender: FDA-Public Use
  Company Number: FR-ROCHE-1560477

PATIENT
  Age: 65 Year
  Sex: Female

DRUGS (2)
  1. ROCEPHINE [Suspect]
     Active Substance: CEFTRIAXONE SODIUM
     Indication: PYELONEPHRITIS ACUTE
     Route: 042
     Dates: start: 20140518, end: 20140519
  2. AMOXICILLINE [Suspect]
     Active Substance: AMOXICILLIN
     Indication: PYELONEPHRITIS ACUTE
     Route: 048
     Dates: start: 20140520, end: 20140611

REACTIONS (3)
  - Pseudomembranous colitis [Recovering/Resolving]
  - Colitis [Recovering/Resolving]
  - Clostridium difficile colitis [Recovering/Resolving]

NARRATIVE: CASE EVENT DATE: 20140609
